FAERS Safety Report 25246286 (Version 1)
Quarter: 2025Q2

REPORT INFORMATION
  Report Type: Spontaneous
  Country: US (occurrence: None)
  Receive Date: 20250424
  Receipt Date: 20250424
  Transmission Date: 20250717
  Serious: Yes (Life-Threatening, Other)
  Sender: FDA-CTU
  Company Number: None

PATIENT
  Age: 29 Year
  Sex: Female
  Weight: 49.9 kg

DRUGS (1)
  1. XEOMIN [Suspect]
     Active Substance: INCOBOTULINUMTOXINA
     Dates: start: 20250423, end: 20250423

REACTIONS (8)
  - Pyrexia [None]
  - Gait disturbance [None]
  - Pain [None]
  - Crying [None]
  - Emotional distress [None]
  - Post procedural complication [None]
  - Anaesthetic complication [None]
  - Device malfunction [None]

NARRATIVE: CASE EVENT DATE: 20250423
